FAERS Safety Report 6306449-4 (Version None)
Quarter: 2009Q3

REPORT INFORMATION
  Report Type: 
  Country: None (occurrence: None)
  Receive Date: 20090812
  Receipt Date: 20090807
  Transmission Date: 20100115
  Serious: Yes (Hospitalization)
  Sender: FDA-Public Use
  Company Number: FR-ROCHE-646202

PATIENT
  Sex: Female
  Weight: 69 kg

DRUGS (13)
  1. RIVOTRIL [Suspect]
     Route: 065
     Dates: start: 19970101, end: 20090601
  2. RIVOTRIL [Interacting]
     Route: 065
     Dates: start: 20090601, end: 20090601
  3. CYMBALTA [Interacting]
     Route: 048
     Dates: start: 20080601
  4. VIRLIX [Interacting]
     Route: 048
     Dates: start: 19970101
  5. DI ANTALVIC [Interacting]
     Route: 048
     Dates: start: 20070201
  6. SERESTA [Interacting]
     Indication: ANXIETY
     Route: 048
     Dates: start: 19970101
  7. SERETIDE [Concomitant]
     Indication: ASTHMA
     Route: 065
  8. NASACORT [Concomitant]
     Indication: ASTHMA
     Route: 065
  9. PROZAC [Concomitant]
     Indication: DEPRESSION
     Route: 065
  10. SIMVASTATIN [Concomitant]
     Dates: start: 20090201
  11. DIHYDROERGOTAMINE MESYLATE [Concomitant]
     Route: 048
     Dates: start: 20080601
  12. CERVOXAN [Concomitant]
     Route: 048
     Dates: start: 20080601
  13. OMEPRAZOLE [Concomitant]
     Route: 048
     Dates: start: 20010401

REACTIONS (5)
  - ABNORMAL BEHAVIOUR [None]
  - COGNITIVE DISORDER [None]
  - DRUG INTERACTION [None]
  - HALLUCINATION [None]
  - WITHDRAWAL SYNDROME [None]
